FAERS Safety Report 14038440 (Version 3)
Quarter: 2018Q1

REPORT INFORMATION
  Report Type: Spontaneous
  Country: JP (occurrence: JP)
  Receive Date: 20171004
  Receipt Date: 20180119
  Transmission Date: 20180508
  Serious: Yes (Life-Threatening)
  Sender: FDA-Public Use
  Company Number: JP-PFIZER INC-2017424763

PATIENT
  Age: 7 Month
  Sex: Female

DRUGS (4)
  1. SIROLIMUS. [Suspect]
     Active Substance: SIROLIMUS
     Dosage: 0.4 MG, UNK
     Route: 048
     Dates: start: 20170520, end: 20170607
  2. SIROLIMUS. [Suspect]
     Active Substance: SIROLIMUS
     Dosage: 0.6 MG, UNK
     Route: 048
     Dates: start: 20170608, end: 20170628
  3. SIROLIMUS. [Suspect]
     Active Substance: SIROLIMUS
     Indication: LYMPHANGIOMA
     Dosage: 0.2 MG, 1X/DAY
     Route: 048
     Dates: start: 20170302
  4. SIROLIMUS. [Suspect]
     Active Substance: SIROLIMUS
     Dosage: 0.9 MG, UNK
     Route: 048
     Dates: start: 20170711, end: 20170721

REACTIONS (6)
  - Haemorrhagic diathesis [Recovering/Resolving]
  - Condition aggravated [Recovering/Resolving]
  - Hyperlipidaemia [Not Recovered/Not Resolved]
  - Hyperlipidaemia [Recovered/Resolved]
  - Hyperlipidaemia [Recovered/Resolved]
  - Off label use [Unknown]

NARRATIVE: CASE EVENT DATE: 20170405
